FAERS Safety Report 11258619 (Version 2)
Quarter: 2015Q3

REPORT INFORMATION
  Report Type: Spontaneous
  Country: JP (occurrence: None)
  Receive Date: 20150708
  Receipt Date: 20150724
  Transmission Date: 20151125
  Serious: Yes (Hospitalization)
  Sender: FDA-Public Use
  Company Number: JP-2015VAL000427

PATIENT
  Age: 29 Year
  Sex: Female

DRUGS (3)
  1. PANSPORIN (CEFOTIAM HYDROCHLORIDE) [Concomitant]
  2. CLEAMINE (AMINOPHENAZONE, CAFFEINE, CYCLIZINE HYDROCHLORIDE, CYCLOBARBITAL, ERGOTAMINE TARTRATE, PHENACETIN) [Concomitant]
  3. METHERGINE [Suspect]
     Active Substance: METHYLERGONOVINE MALEATE
     Indication: ABORTION
     Dosage: 0.375 MG, UNK, ORAL
     Route: 048
     Dates: start: 201108

REACTIONS (2)
  - Meningitis aseptic [None]
  - Type IV hypersensitivity reaction [None]

NARRATIVE: CASE EVENT DATE: 201108
